FAERS Safety Report 15098855 (Version 5)
Quarter: 2019Q1

REPORT INFORMATION
  Report Type: Spontaneous
  Country: FR (occurrence: FR)
  Receive Date: 20180702
  Receipt Date: 20190314
  Transmission Date: 20190417
  Serious: Yes (Hospitalization, Other)
  Sender: FDA-Public Use
  Company Number: FR-PFIZER INC-2018261597

PATIENT
  Age: 60 Year
  Sex: Male

DRUGS (22)
  1. LINEZOLID. [Suspect]
     Active Substance: LINEZOLID
     Dosage: UNK
     Route: 042
     Dates: start: 20180503, end: 20180517
  2. PANTOPRAZOLE [Suspect]
     Active Substance: PANTOPRAZOLE
     Indication: ABDOMINAL PAIN UPPER
     Dosage: 20 MG, ONCE DAILY
     Route: 048
     Dates: start: 20180424, end: 20180519
  3. TRISENOX [Suspect]
     Active Substance: ARSENIC TRIOXIDE
     Dosage: 12.73 MG, UNK
     Route: 042
     Dates: start: 20180411, end: 20180526
  4. VESANOID [Suspect]
     Active Substance: TRETINOIN
     Dosage: 90 MG, QD
     Route: 048
     Dates: start: 20180509
  5. TAZOCILLINE [Suspect]
     Active Substance: PIPERACILLIN SODIUM\TAZOBACTAM SODIUM
     Indication: FEBRILE BONE MARROW APLASIA
     Dosage: 4 G, 1X/DAY
     Route: 042
     Dates: start: 20180413
  6. CETIRIZINE DIHCL [Suspect]
     Active Substance: CETIRIZINE HYDROCHLORIDE
     Indication: URTICARIA
     Dosage: 10 MG, ONCE DAILY
     Route: 048
     Dates: start: 20180414, end: 20180423
  7. TRISENOX [Suspect]
     Active Substance: ARSENIC TRIOXIDE
     Dosage: 12.75 MG, CYCLIC (J1 TO J5/CURE)
     Route: 042
     Dates: start: 20180518, end: 20180521
  8. TRISENOX [Suspect]
     Active Substance: ARSENIC TRIOXIDE
     Dosage: 12.75 MG, CYCLIC (J1 TO J5/CURE)
     Route: 042
     Dates: start: 20180522, end: 20180526
  9. CETIRIZINE [Suspect]
     Active Substance: CETIRIZINE HYDROCHLORIDE
     Indication: URTICARIA
     Dosage: 10 MILLIGRAM, QD
     Route: 048
     Dates: start: 20180414, end: 20180423
  10. VESANOID [Suspect]
     Active Substance: TRETINOIN
     Indication: ACUTE MYELOID LEUKAEMIA
     Dosage: 90 MG, QD
     Route: 048
     Dates: start: 20180411, end: 20180420
  11. ZOLPIDEM [Concomitant]
     Active Substance: ZOLPIDEM\ZOLPIDEM TARTRATE
     Dosage: 5 MG, UNK
     Route: 065
     Dates: start: 20180419
  12. ALPRAZOLAM. [Suspect]
     Active Substance: ALPRAZOLAM
     Indication: ANXIETY
     Dosage: 0.25 MILLIGRAM, QD
     Route: 048
     Dates: start: 20180512
  13. TAZOCILLINE [Suspect]
     Active Substance: PIPERACILLIN SODIUM\TAZOBACTAM SODIUM
     Dosage: 16 G, QD
     Route: 042
     Dates: start: 20180413
  14. FLUCONAZOLE. [Suspect]
     Active Substance: FLUCONAZOLE
     Dosage: 400 MG, UNK
     Route: 042
     Dates: start: 20180411
  15. TRISENOX [Suspect]
     Active Substance: ARSENIC TRIOXIDE
     Indication: ACUTE MYELOID LEUKAEMIA
     Dosage: 12.75 MG, CYCLIC (J1 TO J5/CURE)
     Route: 042
     Dates: start: 20180411, end: 20180420
  16. BACTRIM [Suspect]
     Active Substance: SULFAMETHOXAZOLE\TRIMETHOPRIM
     Dosage: 800/160 MILLIGRAM, 1/WEEK
     Route: 048
     Dates: start: 20180411, end: 20180419
  17. HYDREA [Concomitant]
     Active Substance: HYDROXYUREA
     Dosage: UNSPECIFIED, 1-1-1 ON 21APR2018 2-2-2 FROM 23MAY2018 TO 27MAY2018
     Dates: start: 20180421, end: 20180427
  18. AMLODIPINE [Suspect]
     Active Substance: AMLODIPINE BESYLATE
     Indication: HYPERTENSION
     Dosage: 10 MG, ONCE DAILY
     Route: 048
     Dates: start: 20180509
  19. LINEZOLID. [Suspect]
     Active Substance: LINEZOLID
     Indication: FEBRILE BONE MARROW APLASIA
     Dosage: 600 MG, TWICE DAILY (EVERY 12H)
     Route: 042
     Dates: start: 20180503, end: 20180517
  20. TRISENOX [Suspect]
     Active Substance: ARSENIC TRIOXIDE
     Dosage: 12.75 MG, CYCLIC (J1 TO J5/CURE)
     Route: 042
     Dates: start: 20180511, end: 20180515
  21. ZELITREX [Suspect]
     Active Substance: VALACYCLOVIR HYDROCHLORIDE
     Indication: ANTIVIRAL PROPHYLAXIS
     Dosage: 500 MG, QD
     Route: 048
     Dates: start: 20180411
  22. CANCIDAS [Suspect]
     Active Substance: CASPOFUNGIN ACETATE
     Indication: FEBRILE BONE MARROW APLASIA
     Dosage: 70 MG, ONCE DAILY
     Route: 042
     Dates: start: 20180503

REACTIONS (8)
  - Hypokalaemia [Unknown]
  - Urticaria [Unknown]
  - Platelet count decreased [Unknown]
  - Hypomagnesaemia [Unknown]
  - Electrocardiogram QT prolonged [Recovered/Resolved]
  - Differentiation syndrome [Unknown]
  - Blood creatinine increased [Unknown]
  - Hyperleukocytosis [Unknown]

NARRATIVE: CASE EVENT DATE: 20180420
